FAERS Safety Report 12385864 (Version 2)
Quarter: 2016Q2

REPORT INFORMATION
  Report Type: Spontaneous
  Country: US (occurrence: US)
  Receive Date: 20160519
  Receipt Date: 20160607
  Transmission Date: 20160815
  Serious: Yes (Other)
  Sender: FDA-Public Use
  Company Number: US-PFIZER INC-2016260411

PATIENT
  Age: 63 Year
  Sex: Female

DRUGS (13)
  1. METHOTREXATE SODIUM. [Suspect]
     Active Substance: METHOTREXATE SODIUM
     Indication: ARTHRALGIA
  2. CELEBREX [Concomitant]
     Active Substance: CELECOXIB
     Dosage: 200 MG, AS NEEDED (1 CAP PO BID PRN JOINT PAIN)
     Route: 048
     Dates: start: 20151223
  3. LEFLUNOMIDE. [Suspect]
     Active Substance: LEFLUNOMIDE
     Indication: RHEUMATOID ARTHRITIS
     Dosage: 10 MG, DAILY (10 MG PO DAILY X 1 WEEK AND IF TOLERATING INCREASE TO 20 MG PO DAILY)
     Route: 048
     Dates: start: 20160330, end: 20160422
  4. PROZAC [Concomitant]
     Active Substance: FLUOXETINE HYDROCHLORIDE
     Dosage: 10 MG, 1X/DAY (TAKE 1 CAP (10 MG) BY MOUTH DAILY IN THE MORNING)
     Route: 048
     Dates: start: 20151223
  5. METHOTREXATE SODIUM. [Suspect]
     Active Substance: METHOTREXATE SODIUM
     Indication: RHEUMATOID ARTHRITIS
     Dosage: UNK MG, UNK
     Dates: start: 201603, end: 201604
  6. XELJANZ [Concomitant]
     Active Substance: TOFACITINIB CITRATE
     Indication: RHEUMATOID ARTHRITIS
     Dosage: 11 MG, DAILY
     Route: 048
     Dates: start: 20160422
  7. CLONAZEPAM. [Concomitant]
     Active Substance: CLONAZEPAM
     Dosage: 0.5 MG, UNK (1 TAB PO QHS AND HALF IN AM)
     Route: 048
     Dates: start: 20151223
  8. ERGOCALCIFEROL. [Concomitant]
     Active Substance: ERGOCALCIFEROL
     Dosage: 50000 IU, WEEKLY
     Route: 048
     Dates: start: 20160330
  9. LEFLUNOMIDE. [Suspect]
     Active Substance: LEFLUNOMIDE
     Indication: ARTHRALGIA
  10. PREDNISONE. [Suspect]
     Active Substance: PREDNISONE
     Indication: RHEUMATOID ARTHRITIS
     Dosage: 10 MG, 1X/DAY (2 TABS PO QAM UNTIL FOLLOW UP)
     Route: 048
     Dates: start: 20151223, end: 20160422
  11. PREDNISONE. [Suspect]
     Active Substance: PREDNISONE
     Indication: ARTHRALGIA
  12. SYNTHROID [Concomitant]
     Active Substance: LEVOTHYROXINE SODIUM
     Dosage: 50 UG, DAILY
     Route: 048
     Dates: start: 20151223
  13. OXYCODONE W/ ACETAMINOPHEN [Concomitant]
     Dosage: 1 DF, 3X/DAY (OXYCODONE: 10; ACETAMINOPHEN: 325 MG ORAL TABLET) (1 TAB PO TID)
     Route: 048
     Dates: start: 20151223

REACTIONS (2)
  - Drug ineffective [Unknown]
  - Interstitial lung disease [Unknown]
